FAERS Safety Report 6583753-6 (Version None)
Quarter: 2010Q1

REPORT INFORMATION
  Report Type: 
  Country: None (occurrence: None)
  Receive Date: 20100216
  Receipt Date: 20100208
  Transmission Date: 20100710
  Serious: Yes (Hospitalization, Disabling)
  Sender: FDA-Public Use
  Company Number: PT-MERCK-1002PRT00005

PATIENT
  Sex: Male

DRUGS (4)
  1. ISENTRESS [Suspect]
     Route: 065
  2. ETRAVIRINE [Concomitant]
     Route: 065
  3. DARUNAVIR [Concomitant]
     Route: 065
  4. RITONAVIR [Concomitant]
     Route: 065

REACTIONS (2)
  - CEREBRAL INFARCTION [None]
  - HYPERCHOLESTEROLAEMIA [None]
